FAERS Safety Report 6594871-0 (Version None)
Quarter: 2010Q1

REPORT INFORMATION
  Report Type: 
  Country: None (occurrence: None)
  Receive Date: 20100222
  Receipt Date: 20100105
  Transmission Date: 20100710
  Serious: Yes (Death)
  Sender: FDA-Public Use
  Company Number: US-TYCO HEALTHCARE/MALLINCKRODT-T201000298

PATIENT
  Age: 44 Year
  Sex: Female

DRUGS (9)
  1. ACETAMINOPHEN AND HYDROCODONE BITARTRATE [Suspect]
     Route: 051
  2. TRAMADOL HCL [Suspect]
     Route: 051
  3. ACETAMINOPHEN [Suspect]
     Dosage: UNK
     Route: 051
  4. PROMETHAZINE [Suspect]
     Route: 051
  5. EFAVIRENZ/LAMIVUDINE/TENOFOVIR DISOPROXIL FUMARATE [Concomitant]
  6. PAROXETINE HCL [Concomitant]
  7. SALMETEROL [Concomitant]
  8. ALBUTEROL [Concomitant]
  9. MEPERIDINE HCL [Concomitant]

REACTIONS (13)
  - ABDOMINAL PAIN [None]
  - CARDIAC ARREST [None]
  - COMPLETED SUICIDE [None]
  - CONSTIPATION [None]
  - CYANOSIS [None]
  - DRUG TOXICITY [None]
  - DYSPNOEA [None]
  - EMBOLISM [None]
  - HYPERHIDROSIS [None]
  - HYPOTENSION [None]
  - INTENTIONAL DRUG MISUSE [None]
  - MUSCLE SPASMS [None]
  - TACHYCARDIA [None]
